FAERS Safety Report 14454469 (Version 1)
Quarter: 2018Q1

REPORT INFORMATION
  Report Type: Spontaneous
  Country: US (occurrence: US)
  Receive Date: 20180128
  Receipt Date: 20180128
  Transmission Date: 20180509
  Serious: Yes (Hospitalization)
  Sender: FDA-Public Use
  Company Number: None

PATIENT
  Sex: Male
  Weight: 67.5 kg

DRUGS (6)
  1. FLEXERIL [Concomitant]
     Active Substance: CYCLOBENZAPRINE HYDROCHLORIDE
  2. NEURONTIN [Concomitant]
     Active Substance: GABAPENTIN
  3. STOOL SOFTENER (DOCUSATE) [Concomitant]
     Active Substance: DOCUSATE
  4. CORTICOSTEROID [Suspect]
     Active Substance: CORTICOSTEROID NOS
     Indication: PAIN
     Route: 008
     Dates: start: 20170630, end: 20180123
  5. PERCOCET [Concomitant]
     Active Substance: ACETAMINOPHEN\OXYCODONE HYDROCHLORIDE
  6. TYLENOL [Concomitant]
     Active Substance: ACETAMINOPHEN

REACTIONS (8)
  - Altered visual depth perception [None]
  - Dizziness [None]
  - Headache [None]
  - Blindness transient [None]
  - Somatic dysfunction [None]
  - Vision blurred [None]
  - Pain [None]
  - Gait disturbance [None]

NARRATIVE: CASE EVENT DATE: 20180123
